FAERS Safety Report 23102616 (Version 1)
Quarter: 2023Q4

REPORT INFORMATION
  Report Type: Spontaneous
  Country: US (occurrence: US)
  Receive Date: 20231025
  Receipt Date: 20231025
  Transmission Date: 20240109
  Serious: Yes (Death, Life-Threatening, Hospitalization, Other)
  Sender: FDA-Public Use
  Company Number: US-drreddys-SPO/USA/23/0180269

PATIENT
  Age: 23 Year
  Sex: Male

DRUGS (2)
  1. VALPROIC ACID [Suspect]
     Active Substance: VALPROIC ACID
     Indication: Seizure
  2. LAMOTRIGINE [Concomitant]
     Active Substance: LAMOTRIGINE
     Indication: Seizure

REACTIONS (10)
  - Acute kidney injury [Fatal]
  - Disseminated intravascular coagulation [Fatal]
  - Acute myocardial infarction [Fatal]
  - Rhabdomyolysis [Fatal]
  - Hypoxic-ischaemic encephalopathy [Fatal]
  - Multiple organ dysfunction syndrome [Fatal]
  - Respiratory acidosis [Fatal]
  - Ischaemic hepatitis [Fatal]
  - Cardiac arrest [Recovered/Resolved]
  - Hyperammonaemic encephalopathy [Recovering/Resolving]
